FAERS Safety Report 9029059 (Version 1)
Quarter: 2013Q1

REPORT INFORMATION
  Report Type: Spontaneous
  Country: FR (occurrence: FR)
  Receive Date: 20130122
  Receipt Date: 20130122
  Transmission Date: 20140127
  Serious: Yes (Life-Threatening, Hospitalization)
  Sender: FDA-Public Use
  Company Number: FR-ROCHE-1181007

PATIENT
  Sex: Female
  Weight: 51 kg

DRUGS (33)
  1. MABTHERA [Suspect]
     Indication: RHEUMATOID ARTHRITIS
     Dosage: INJECTIONS
     Route: 042
     Dates: start: 20100915, end: 20100929
  2. ENBREL [Suspect]
     Indication: RHEUMATOID ARTHRITIS
     Route: 058
  3. ARAVA [Suspect]
     Indication: RHEUMATOID ARTHRITIS
     Route: 048
     Dates: start: 201012
  4. ARAVA [Suspect]
     Route: 048
  5. METHOTREXATE [Suspect]
     Indication: RHEUMATOID ARTHRITIS
     Route: 048
  6. METHOTREXATE [Suspect]
     Dosage: REINTRODUCED
     Route: 048
     Dates: start: 20100818, end: 201012
  7. ALLOCHRYSINE [Concomitant]
  8. CORTANCYL [Concomitant]
     Route: 065
  9. METHYLPREDNISOLONE [Concomitant]
     Dosage: 1 BOLUS
     Route: 065
     Dates: start: 20100905
  10. METHYLPREDNISOLONE [Concomitant]
     Dosage: CYCLE 1
     Route: 042
     Dates: start: 20100915
  11. METHYLPREDNISOLONE [Concomitant]
     Dosage: CYCLE 2
     Route: 042
     Dates: start: 20100929
  12. METHYLPREDNISOLONE [Concomitant]
     Dosage: BOLUS
     Route: 065
     Dates: start: 20101020
  13. CAPECITABINE [Concomitant]
     Route: 065
     Dates: start: 201104, end: 201106
  14. FLUOROURACIL [Concomitant]
     Dosage: 6 COURSES
     Route: 065
     Dates: start: 20110922, end: 20111201
  15. FLUOROURACIL [Concomitant]
     Dosage: ON DAY 1, 12 COURSES
     Route: 065
     Dates: start: 20111215, end: 20120524
  16. FLUOROURACIL [Concomitant]
     Route: 065
     Dates: start: 201209, end: 201212
  17. IRINOTECAN [Concomitant]
     Dosage: 6 COURSES
     Route: 065
     Dates: start: 20110922, end: 20111201
  18. IRINOTECAN [Concomitant]
     Dosage: DAY 1, 12 COURSES
     Route: 065
     Dates: start: 20111215, end: 20120524
  19. OXALIPLATIN [Concomitant]
     Dosage: 6 COURSES
     Route: 065
     Dates: start: 20110922, end: 20111201
  20. OXALIPLATIN [Concomitant]
     Route: 065
     Dates: start: 201209, end: 201212
  21. GEMCITABINE [Concomitant]
     Dosage: 7 INFUSIONS
     Route: 065
     Dates: start: 20120611, end: 20120820
  22. FOLINIC ACID [Concomitant]
     Route: 065
     Dates: start: 201209, end: 201212
  23. ATARAX [Concomitant]
  24. CONTRAMAL [Concomitant]
  25. PARIET [Concomitant]
  26. CREON [Concomitant]
  27. PRIMPERAN (BELGIUM) [Concomitant]
  28. SPASFON [Concomitant]
  29. IMODIUM [Concomitant]
  30. ESTREVA [Concomitant]
  31. ESTIMA [Concomitant]
  32. CALCIDIA [Concomitant]
  33. UVEDOSE [Concomitant]

REACTIONS (2)
  - Pancreatic carcinoma [Not Recovered/Not Resolved]
  - Metastases to liver [Not Recovered/Not Resolved]
